FAERS Safety Report 14674885 (Version 2)
Quarter: 2018Q2

REPORT INFORMATION
  Report Type: Other
  Country: CA (occurrence: CA)
  Receive Date: 20180323
  Receipt Date: 20180422
  Transmission Date: 20180711
  Serious: Yes (Other)
  Sender: FDA-Public Use
  Company Number: CA-APOTEX-2018AP008156

PATIENT
  Age: 60 Year
  Sex: Male

DRUGS (2)
  1. SALBUTAMOL [Suspect]
     Active Substance: ALBUTEROL
     Indication: PRODUCT USED FOR UNKNOWN INDICATION
     Dosage: UNK
     Route: 065
  2. FLUTICASONE PROPIONATE W/SALMETEROL XINAFOATE [Suspect]
     Active Substance: FLUTICASONE PROPIONATE\SALMETEROL XINAFOATE
     Indication: PRODUCT USED FOR UNKNOWN INDICATION
     Dosage: 2 DF, BID
     Route: 050

REACTIONS (9)
  - Dyspnoea [Unknown]
  - Blood count abnormal [Unknown]
  - Upper respiratory tract infection [Unknown]
  - Asthma [Unknown]
  - Dyspnoea at rest [Unknown]
  - Adenomatous polyposis coli [Unknown]
  - Bronchospasm [Unknown]
  - Cough [Unknown]
  - Obstructive airways disorder [Unknown]
